FAERS Safety Report 12265342 (Version 1)
Quarter: 2016Q2

REPORT INFORMATION
  Report Type: Spontaneous
  Country: CA (occurrence: CA)
  Receive Date: 20160413
  Receipt Date: 20160413
  Transmission Date: 20160815
  Serious: Yes (Disabling)
  Sender: FDA-Public Use
  Company Number: CA-PROCTER_AND_GAMBLE-GS16040430

PATIENT
  Age: 17 Year
  Sex: Male

DRUGS (1)
  1. OLDSPICEAPDO+BSPRAY [Suspect]
     Active Substance: ALUMINUM CHLOROHYDRATE OR ALUMINUM ZIRCONIUM TETRACHLOROHYDREX GLY
     Dosage: 1 APPLIC, 1 ONLY
     Route: 061

REACTIONS (4)
  - Skin haemorrhage [Recovered/Resolved]
  - Skin exfoliation [Not Recovered/Not Resolved]
  - Rash [Not Recovered/Not Resolved]
  - Chemical burn of skin [Not Recovered/Not Resolved]
